FAERS Safety Report 16855459 (Version 4)
Quarter: 2019Q4

REPORT INFORMATION
  Report Type: Spontaneous
  Country: US (occurrence: US)
  Receive Date: 20190926
  Receipt Date: 20191120
  Transmission Date: 20200122
  Serious: Yes (Death, Other)
  Sender: FDA-Public Use
  Company Number: PHEH2019US039184

PATIENT
  Age: 19 Year
  Sex: Male
  Weight: 61.1 kg

DRUGS (19)
  1. SERTRALINE [Concomitant]
     Active Substance: SERTRALINE HYDROCHLORIDE
     Indication: DEPRESSION
     Dosage: 150 MG, QD
     Route: 065
     Dates: start: 20190228, end: 20190317
  2. MIRALAX [Concomitant]
     Active Substance: POLYETHYLENE GLYCOL 3350
     Indication: CONSTIPATION
     Dosage: 17 MG, QD
     Route: 048
     Dates: start: 20190312, end: 20190314
  3. ALTEPLASE. [Concomitant]
     Active Substance: ALTEPLASE
     Indication: PRODUCT USED FOR UNKNOWN INDICATION
     Dosage: 0.5 MG, ONCE/SINGLE
     Route: 042
     Dates: start: 20190316, end: 20190316
  4. KYMRIAH [Suspect]
     Active Substance: TISAGENLECLEUCEL
     Indication: ACUTE LYMPHOCYTIC LEUKAEMIA REFRACTORY
     Dosage: 0.17 X 10E6
     Route: 042
     Dates: start: 20190306, end: 20190306
  5. LORAZEPAM. [Concomitant]
     Active Substance: LORAZEPAM
     Indication: NAUSEA
     Dosage: 1.2 MG, Q6H
     Route: 042
     Dates: start: 20190303, end: 20190318
  6. CYTOXAN [Concomitant]
     Active Substance: CYCLOPHOSPHAMIDE
     Dosage: UNK
     Route: 065
     Dates: start: 20190731
  7. THIOTEPA. [Concomitant]
     Active Substance: THIOTEPA
     Indication: PRODUCT USED FOR UNKNOWN INDICATION
     Dosage: UNK
     Route: 065
     Dates: start: 20190731
  8. MESNA. [Concomitant]
     Active Substance: MESNA
     Indication: CHEMOTHERAPY
     Dosage: 300 MG/M2, QD
     Route: 042
     Dates: start: 20190228, end: 20190301
  9. CYTOXAN [Concomitant]
     Active Substance: CYCLOPHOSPHAMIDE
     Indication: CHEMOTHERAPY
     Dosage: 500 MG/M2, QD
     Route: 042
     Dates: start: 20190228, end: 20190301
  10. OMEPRAZOL [Concomitant]
     Active Substance: OMEPRAZOLE
     Indication: PRODUCT USED FOR UNKNOWN INDICATION
     Dosage: 20 MG, QD
     Route: 048
     Dates: start: 20190301, end: 20190318
  11. RANITIDINE. [Concomitant]
     Active Substance: RANITIDINE
     Indication: GASTROINTESTINAL DISORDER
     Dosage: 75 MG, ONCE/SINGLE
     Route: 042
     Dates: start: 20190301, end: 20190301
  12. PENTAMIDINE [Concomitant]
     Active Substance: PENTAMIDINE
     Indication: PROPHYLAXIS
     Dosage: 254 MG, QMO
     Route: 065
     Dates: start: 20190305, end: 20190305
  13. TYLENOL [Concomitant]
     Active Substance: ACETAMINOPHEN
     Indication: PYREXIA
     Dosage: 650 MG, Q6H
     Route: 048
     Dates: start: 20190301, end: 20190317
  14. ACYCLOVIR. [Concomitant]
     Active Substance: ACYCLOVIR
     Indication: PROPHYLAXIS
     Dosage: 400 MG, BID
     Route: 048
     Dates: start: 20190305, end: 20190318
  15. FLUCONAZOLE. [Concomitant]
     Active Substance: FLUCONAZOLE
     Indication: PROPHYLAXIS
     Dosage: 300 MG, QD
     Route: 048
     Dates: start: 20190305, end: 20190318
  16. BENADRYL [Concomitant]
     Active Substance: DIPHENHYDRAMINE HYDROCHLORIDE
     Indication: PREMEDICATION
     Dosage: 50 MG, ONCE/SINGLE
     Route: 042
     Dates: start: 20190306, end: 20190306
  17. KEPPRA [Concomitant]
     Active Substance: LEVETIRACETAM
     Indication: SEIZURE PROPHYLAXIS
     Dosage: 500 MG, BID
     Route: 048
     Dates: start: 20190228, end: 20190318
  18. ONDANSETRAN [Concomitant]
     Active Substance: ONDANSETRON HYDROCHLORIDE
     Indication: NAUSEA
     Dosage: 8 MG, Q6H
     Route: 042
     Dates: start: 20190228, end: 20190315
  19. FLUDARABINE [Concomitant]
     Active Substance: FLUDARABINE PHOSPHATE
     Indication: CHEMOTHERAPY
     Dosage: 30 MG/M2, QD
     Route: 042
     Dates: start: 20190228, end: 20190303

REACTIONS (16)
  - Haematuria [Unknown]
  - B-cell aplasia [Unknown]
  - Viraemia [Unknown]
  - Headache [Recovered/Resolved]
  - Pneumomediastinum [Fatal]
  - Dysuria [Unknown]
  - Acute respiratory failure [Unknown]
  - Acute lymphocytic leukaemia recurrent [Recovered/Resolved with Sequelae]
  - Subcutaneous emphysema [Fatal]
  - Barotrauma [Fatal]
  - Renal failure [Unknown]
  - Candida infection [Unknown]
  - Pneumothorax [Fatal]
  - Mucosal inflammation [Unknown]
  - Escherichia bacteraemia [Unknown]
  - Neurotoxicity [Unknown]

NARRATIVE: CASE EVENT DATE: 20190605
